FAERS Safety Report 15074886 (Version 1)
Quarter: 2018Q2

REPORT INFORMATION
  Report Type: Report from Study
  Country: US (occurrence: US)
  Receive Date: 20180627
  Receipt Date: 20180627
  Transmission Date: 20180711
  Serious: No
  Sender: FDA-Public Use
  Company Number: US-SAOL THERAPEUTICS-2017SAO01552

PATIENT
  Age: 52 Year

DRUGS (4)
  1. BACLOFEN. [Suspect]
     Active Substance: BACLOFEN
     Dosage: UNK, \DAY
     Route: 037
     Dates: start: 20170125
  2. FENTANYL. [Suspect]
     Active Substance: FENTANYL
     Dosage: 1995.1 ?G, \DAY
     Route: 037
     Dates: start: 20170125
  3. BUPIVACAINE. [Suspect]
     Active Substance: BUPIVACAINE
     Dosage: 9.975 MG, \DAY
     Route: 037
     Dates: start: 20170125
  4. DILAUDID [Suspect]
     Active Substance: HYDROMORPHONE HYDROCHLORIDE
     Dosage: 4.987 MG, \DAY
     Route: 037
     Dates: start: 20170125

REACTIONS (5)
  - Muscle contracture [Unknown]
  - Hypoaesthesia [Recovered/Resolved]
  - Unevaluable event [Unknown]
  - Paraesthesia [Recovered/Resolved]
  - Muscular weakness [Recovered/Resolved]

NARRATIVE: CASE EVENT DATE: 20170509
